FAERS Safety Report 19843889 (Version 2)
Quarter: 2021Q3

REPORT INFORMATION
  Report Type: Spontaneous
  Country: US (occurrence: US)
  Receive Date: 20210917
  Receipt Date: 20210925
  Transmission Date: 20211014
  Serious: Yes (Other)
  Sender: FDA-Public Use
  Company Number: US-SA-2021SA302797

PATIENT
  Age: 84 Year
  Sex: Male

DRUGS (3)
  1. ZOLPIDEM TARTRATE. [Suspect]
     Active Substance: ZOLPIDEM TARTRATE
     Dosage: 2.5 MG, QD
  2. ZOLPIDEM TARTRATE. [Suspect]
     Active Substance: ZOLPIDEM TARTRATE
     Indication: SLEEP APNOEA SYNDROME
     Dosage: 5 MG, QD
  3. ZOLPIDEM TARTRATE. [Suspect]
     Active Substance: ZOLPIDEM TARTRATE
     Indication: INSOMNIA
     Dosage: 10 MG, NIGHTLY

REACTIONS (12)
  - Dysstasia [Recovered/Resolved]
  - Hallucination, visual [Recovered/Resolved]
  - Circadian rhythm sleep disorder [Recovered/Resolved]
  - Vascular dementia [Recovered/Resolved]
  - Delirium [Recovered/Resolved]
  - Fall [Recovered/Resolved]
  - Encephalopathy [Recovered/Resolved]
  - Hallucination, auditory [Recovered/Resolved]
  - Urinary incontinence [Recovered/Resolved]
  - Gait disturbance [Recovered/Resolved]
  - Personality change [Recovered/Resolved]
  - Cerebral small vessel ischaemic disease [Recovered/Resolved]
